FAERS Safety Report 5703779-1 (Version None)
Quarter: 2008Q2

REPORT INFORMATION
  Report Type: 
  Country: None (occurrence: None)
  Receive Date: 20080414
  Receipt Date: 20080403
  Transmission Date: 20081010
  Serious: Yes (Other)
  Sender: FDA-Public Use
  Company Number: US-BAYER-USA-2002-008640

PATIENT
  Age: 51 Year
  Sex: Female
  Weight: 75 kg

DRUGS (24)
  1. BETASERON [Suspect]
     Indication: MULTIPLE SCLEROSIS
     Dosage: TOTAL DAILY DOSE: 8 MIU
     Route: 058
     Dates: start: 19950101
  2. PREMARIN [Concomitant]
     Dates: start: 19900101, end: 20000101
  3. CLONIDINE HCL [Concomitant]
     Indication: HOT FLUSH
     Route: 048
     Dates: start: 20000101
  4. DETROL [Concomitant]
     Indication: URINARY INCONTINENCE
     Route: 048
     Dates: start: 19990101
  5. ATENOLOL [Concomitant]
     Indication: HEART RATE IRREGULAR
     Dosage: UNIT DOSE: 50 MG
     Route: 048
  6. PROZAC [Concomitant]
     Indication: DEPRESSION
     Dosage: UNIT DOSE: 40 MG
     Route: 048
  7. ZYRTEC [Concomitant]
     Indication: SEASONAL ALLERGY
     Route: 048
     Dates: start: 20020101
  8. PRILOSEC [Concomitant]
     Indication: STOMACH DISCOMFORT
     Dosage: UNIT DOSE: 20 MG
     Route: 048
     Dates: start: 19990101
  9. KLONOPIN [Concomitant]
     Indication: CONVULSION
     Dosage: UNIT DOSE: 1 MG
     Route: 048
  10. XENICAL [Concomitant]
     Indication: CONSTIPATION
     Dates: start: 20020101
  11. FLONASE [Concomitant]
     Indication: SEASONAL ALLERGY
     Route: 045
  12. FOLIC ACID [Concomitant]
     Dosage: UNIT DOSE: 4 MG
     Route: 048
  13. ASCORBIC ACID [Concomitant]
     Route: 048
  14. CYANOCOBALAMIN [Concomitant]
     Route: 058
  15. MULTIVITE [Concomitant]
     Route: 048
  16. CALCIUM WITH VITAMIN D [Concomitant]
     Dosage: UNIT DOSE: 600 MG
     Route: 048
  17. VITAMIN E [Concomitant]
     Dosage: UNIT DOSE: 800 IU
     Route: 048
  18. ACETYLSALICYLIC ACID SRT [Concomitant]
     Route: 048
  19. CATAPRES-TTS-1 [Concomitant]
     Indication: HOT FLUSH
     Route: 062
     Dates: start: 20000101
  20. BEXTRA [Concomitant]
     Indication: ARTHRITIS
     Dosage: UNIT DOSE: 20 MG
     Route: 048
  21. ZANAFLEX [Concomitant]
     Route: 048
     Dates: end: 20030101
  22. ALBUTEROL [Concomitant]
     Indication: SEASONAL ALLERGY
     Route: 055
  23. VICODIN [Concomitant]
     Indication: ARTHRITIS
     Route: 048
  24. TRAMADOL HCL [Concomitant]
     Indication: ARTHRITIS
     Route: 048

REACTIONS (3)
  - ALOPECIA [None]
  - BREAST CANCER FEMALE [None]
  - BREAST MASS [None]
